FAERS Safety Report 21880820 (Version 1)
Quarter: 2023Q1

REPORT INFORMATION
  Report Type: Spontaneous
  Country: US (occurrence: US)
  Receive Date: 20230118
  Receipt Date: 20230118
  Transmission Date: 20230418
  Serious: No
  Sender: FDA-Public Use
  Company Number: US-BAYER-2023A002947

PATIENT
  Age: 70 Year
  Sex: Female

DRUGS (2)
  1. MIRALAX [Suspect]
     Active Substance: POLYETHYLENE GLYCOL 3350
     Indication: Prophylaxis
     Dosage: 1/2 DOSE
     Route: 048
  2. LOVASTATIN [Concomitant]
     Active Substance: LOVASTATIN
     Indication: Prophylaxis
     Dosage: 20 MG
     Route: 048

REACTIONS (1)
  - Product prescribing issue [Recovered/Resolved]
